FAERS Safety Report 16758937 (Version 2)
Quarter: 2019Q4

REPORT INFORMATION
  Report Type: Spontaneous
  Country: US (occurrence: US)
  Receive Date: 20190830
  Receipt Date: 20191001
  Transmission Date: 20200122
  Serious: Yes (Death)
  Sender: FDA-Public Use
  Company Number: US-GLAXOSMITHKLINE-US2019AMR158064

PATIENT
  Sex: Female
  Weight: 82.99 kg

DRUGS (1)
  1. TRELEGY ELLIPTA [Suspect]
     Active Substance: FLUTICASONE FUROATE\UMECLIDINIUM BROMIDE\VILANTEROL TRIFENATATE
     Indication: PULMONARY FIBROSIS
     Dosage: UNK (100/62.5/25 MCG)
     Route: 065
     Dates: start: 20181116

REACTIONS (2)
  - Lung disorder [Fatal]
  - Product used for unknown indication [Unknown]
